FAERS Safety Report 7954593-8 (Version None)
Quarter: 2011Q4

REPORT INFORMATION
  Report Type: 
  Country: None (occurrence: None)
  Receive Date: 20111202
  Receipt Date: 20111125
  Transmission Date: 20120403
  Serious: Yes (Other)
  Sender: FDA-Public Use
  Company Number: PHHY2011JP103081

PATIENT
  Age: 37 Year
  Sex: Female

DRUGS (2)
  1. XELODA [Suspect]
     Dosage: UNK UKN, UNK
     Route: 048
  2. ZOMETA [Suspect]
     Indication: METASTASES TO BONE
     Dosage: UNK UKN, UNK
     Route: 041

REACTIONS (1)
  - HYPOACUSIS [None]
